FAERS Safety Report 7820557-8 (Version None)
Quarter: 2011Q4

REPORT INFORMATION
  Report Type: 
  Country: None (occurrence: None)
  Receive Date: 20111018
  Receipt Date: 20111006
  Transmission Date: 20120403
  Serious: Yes (Hospitalization, Other)
  Sender: FDA-Public Use
  Company Number: PHHY2011MA89084

PATIENT
  Age: 62 Year
  Sex: Male

DRUGS (3)
  1. EXFORGE [Suspect]
     Indication: HYPERTENSION
     Dosage: 160 MG VALS AND 5 MG AMLO
     Route: 048
  2. ANTIPLATELET AGENT [Concomitant]
     Dosage: UNK UKN, UNK
  3. STATIN [Concomitant]

REACTIONS (1)
  - ISCHAEMIC STROKE [None]
